FAERS Safety Report 9026638 (Version 1)
Quarter: 2013Q1

REPORT INFORMATION
  Report Type: Spontaneous
  Country: JP (occurrence: JP)
  Receive Date: 20130123
  Receipt Date: 20130123
  Transmission Date: 20140127
  Serious: Yes (Hospitalization)
  Sender: FDA-Public Use
  Company Number: PHHY2013JP005048

PATIENT
  Age: 71 Year
  Sex: Male
  Weight: 67 kg

DRUGS (14)
  1. ZOMETA [Suspect]
     Indication: METASTASES TO BONE
     Dosage: 4 MG, UNK
     Route: 042
     Dates: start: 20110819, end: 20120719
  2. DENOSUMAB [Suspect]
     Indication: BONE LESION
     Dosage: 120 MG, UNK
     Dates: start: 20120816, end: 20120919
  3. LANTUS [Concomitant]
  4. REBAMIPIDE [Concomitant]
     Dosage: UNK UKN, UNK
     Dates: start: 20110829
  5. ZOLADEX [Concomitant]
     Dosage: UNK UKN, UNK
     Dates: start: 20120105
  6. LOXOPROFEN SODIUM [Concomitant]
     Dosage: UNK UKN, UNK
     Dates: start: 20110829
  7. DECADRON                           /00069801/ [Concomitant]
     Dosage: UNK UKN, UNK
     Dates: start: 20111208, end: 20120924
  8. BUP-4 [Concomitant]
     Dosage: UNK UKN, UNK
  9. ACARBOSE [Concomitant]
     Dosage: UNK UKN, UNK
  10. AMARYL [Concomitant]
     Dosage: UNK UKN, UNK
  11. EQUA [Concomitant]
     Dosage: UNK UKN, UNK
  12. AMLODIPINE [Concomitant]
     Dosage: UNK UKN, UNK
  13. GASPORT [Concomitant]
     Dosage: UNK UKN, UNK
  14. MAGLAX [Concomitant]
     Dosage: UNK UKN, UNK

REACTIONS (8)
  - Cellulitis [Unknown]
  - Diabetes mellitus inadequate control [Unknown]
  - Osteonecrosis of jaw [Recovering/Resolving]
  - Oedema mouth [Recovering/Resolving]
  - Erythema [Recovering/Resolving]
  - Purulent discharge [Recovering/Resolving]
  - Chills [Recovered/Resolved]
  - Pyrexia [Recovered/Resolved]
